FAERS Safety Report 8512856-1 (Version None)
Quarter: 2012Q3

REPORT INFORMATION
  Report Type: 
  Country: None (occurrence: None)
  Receive Date: 20120716
  Receipt Date: 20120705
  Transmission Date: 20120928
  Serious: Yes (Hospitalization)
  Sender: FDA-Public Use
  Company Number: JP-VERTEX PHARMACEUTICALS INC.-AE-2012-010100

PATIENT
  Age: 61 Year
  Sex: Female

DRUGS (16)
  1. TELAVIC (TELAPREVIR) [Suspect]
     Indication: HEPATITIS C
     Route: 048
     Dates: start: 20120327, end: 20120521
  2. RABEPRAZOLE SODIUM [Concomitant]
     Route: 048
  3. PEGINTERFERON ALFA-2B [Concomitant]
     Indication: HEPATITIS C
     Route: 058
     Dates: start: 20120327
  4. PREDNISOLONE [Concomitant]
     Route: 048
     Dates: start: 20120410, end: 20120602
  5. TPN ELECTROLYTES IN PLASTIC CONTAINER [Concomitant]
     Route: 048
     Dates: start: 20120528, end: 20120602
  6. MALFA [Concomitant]
     Route: 048
     Dates: start: 20120528, end: 20120602
  7. RIBAVIRIN [Concomitant]
     Indication: HEPATITIS C
     Route: 048
     Dates: start: 20120327, end: 20120528
  8. ACTOS [Concomitant]
     Route: 048
  9. KN NO.4 [Concomitant]
     Route: 051
     Dates: start: 20120330, end: 20120522
  10. VITAMEDIN [Concomitant]
     Route: 051
     Dates: start: 20120330, end: 20120602
  11. PEGINTERFERON ALFA-2B [Concomitant]
     Route: 058
     Dates: end: 20120529
  12. TPN ELECTROLYTES IN PLASTIC CONTAINER [Concomitant]
     Route: 051
     Dates: start: 20120523, end: 20120602
  13. NAXIAN [Concomitant]
     Route: 048
  14. AMARYL [Concomitant]
     Route: 048
  15. FAMOTIDINE [Concomitant]
     Route: 048
     Dates: start: 20120418, end: 20120602
  16. AMLODIPINE [Concomitant]
     Route: 048

REACTIONS (5)
  - DECREASED APPETITE [None]
  - RENAL IMPAIRMENT [None]
  - DYSGEUSIA [None]
  - MALNUTRITION [None]
  - ANAEMIA [None]
